FAERS Safety Report 20867879 (Version 2)
Quarter: 2022Q2

REPORT INFORMATION
  Report Type: Spontaneous
  Country: PT (occurrence: PT)
  Receive Date: 20220524
  Receipt Date: 20220603
  Transmission Date: 20220720
  Serious: Yes (Hospitalization)
  Sender: FDA-Public Use
  Company Number: PT-Merck Healthcare KGaA-9322029

PATIENT
  Age: 60 Year
  Sex: Male

DRUGS (4)
  1. ERBITUX [Suspect]
     Active Substance: CETUXIMAB
     Indication: Oropharyngeal squamous cell carcinoma
     Dosage: 400 MG/M2, UNK
     Route: 042
     Dates: start: 201801
  2. ERBITUX [Suspect]
     Active Substance: CETUXIMAB
     Dosage: 250 MG/M2, WEEKLY (1/W)
     Route: 042
     Dates: start: 201801
  3. CISPLATIN [Concomitant]
     Active Substance: CISPLATIN
     Indication: Oropharyngeal squamous cell carcinoma
     Dosage: 100 MG/M2, UNK
     Route: 042
     Dates: start: 201801
  4. FLUOROURACIL [Concomitant]
     Active Substance: FLUOROURACIL
     Indication: Oropharyngeal squamous cell carcinoma
     Dosage: 4000 MG/M2, UNK
     Route: 042
     Dates: start: 201801

REACTIONS (7)
  - Palmar-plantar erythrodysaesthesia syndrome [Unknown]
  - Thrombocytopenia [Unknown]
  - Anaemia [Unknown]
  - Alopecia [Unknown]
  - Neutropenia [Unknown]
  - Mucosal inflammation [Unknown]
  - Diarrhoea [Unknown]

NARRATIVE: CASE EVENT DATE: 20180201
